FAERS Safety Report 5072789-2 (Version None)
Quarter: 2006Q3

REPORT INFORMATION
  Report Type: 
  Country: None (occurrence: None)
  Receive Date: 20060801
  Receipt Date: 20060719
  Transmission Date: 20061208
  Serious: Yes (Death, Hospitalization, Other)
  Sender: FDA-Public Use
  Company Number: 2006VX000759

PATIENT
  Age: 64 Year
  Sex: Male

DRUGS (8)
  1. PERMAX [Suspect]
     Indication: PARKINSON'S DISEASE
     Dosage: 1750 UG;QD;PO
     Route: 048
     Dates: end: 20060619
  2. PERMAX [Suspect]
     Indication: PARKINSON'S DISEASE
     Dosage: 1750 UG;QD;PO
     Route: 048
     Dates: start: 20060623
  3. LEVODOPA [Concomitant]
  4. PRAMIPEXOLE DIHYDROCHLORIDE [Concomitant]
  5. SELEGILINE HYDROCHLORIDE [Concomitant]
  6. ..................... [Concomitant]
  7. AMANTADINE HCL [Concomitant]
  8. ....................... [Concomitant]

REACTIONS (11)
  - ATRIAL FIBRILLATION [None]
  - BASEDOW'S DISEASE [None]
  - BLOOD CREATINE PHOSPHOKINASE INCREASED [None]
  - CONGESTIVE CARDIOMYOPATHY [None]
  - DEPRESSED LEVEL OF CONSCIOUSNESS [None]
  - DIABETES MELLITUS [None]
  - DYSPNOEA [None]
  - EJECTION FRACTION DECREASED [None]
  - NEUROLEPTIC MALIGNANT SYNDROME [None]
  - PULMONARY OEDEMA [None]
  - PYREXIA [None]
